FAERS Safety Report 4415883-9 (Version None)
Quarter: 2004Q3

REPORT INFORMATION
  Report Type: 
  Country: None (occurrence: None)
  Receive Date: 20040805
  Receipt Date: 20040426
  Transmission Date: 20050211
  Serious: No
  Sender: FDA-Public Use
  Company Number: US-GLAXOSMITHKLINE-A0508609A

PATIENT
  Age: 50 Year
  Sex: Male

DRUGS (1)
  1. AVANDAMET [Suspect]
     Dosage: 1TAB PER DAY
     Route: 048

REACTIONS (4)
  - CONFUSIONAL STATE [None]
  - MIGRAINE [None]
  - PARAESTHESIA [None]
  - POLLAKIURIA [None]
